FAERS Safety Report 4809314-4 (Version None)
Quarter: 2005Q4

REPORT INFORMATION
  Report Type: 
  Country: None (occurrence: None)
  Receive Date: 20051021
  Receipt Date: 20020712
  Transmission Date: 20060501
  Serious: No
  Sender: FDA-Public Use
  Company Number: USA020718365

PATIENT
  Age: 37 Year
  Sex: Male
  Weight: 107 kg

DRUGS (7)
  1. ZYPREXA [Suspect]
     Indication: SCHIZOPHRENIA
     Dosage: 30 MG/D
     Dates: start: 19970712
  2. GLUCOPHAGE [Concomitant]
  3. ACTOS [Concomitant]
  4. STARLIX [Concomitant]
  5. SYNTHORID (LEVOTHYROXINE SODIUM) [Concomitant]
  6. ZOCOR [Concomitant]
  7. COZAAR (LOSARTAN POSTASSIUM) [Concomitant]

REACTIONS (6)
  - ANAEMIA [None]
  - BLOOD CHOLESTEROL INCREASED [None]
  - DIABETES MELLITUS [None]
  - HALLUCINATION, AUDITORY [None]
  - HYPERTENSION [None]
  - THYROID DISORDER [None]
